FAERS Safety Report 9819362 (Version 2)
Quarter: 2014Q2

REPORT INFORMATION
  Report Type: Spontaneous
  Country: FR (occurrence: FR)
  Receive Date: 20140115
  Receipt Date: 20140415
  Transmission Date: 20141212
  Serious: Yes (Hospitalization, Other)
  Sender: FDA-Public Use
  Company Number: FR-PFIZER INC-2014005645

PATIENT
  Age: 91 Year
  Sex: Female

DRUGS (7)
  1. TAHOR [Suspect]
  2. ATENOLOL [Suspect]
  3. ZOLPIDEM TARTRATE [Suspect]
  4. ALLOPURINOL [Suspect]
  5. FUROSEMIDE [Suspect]
  6. PERINDOPRIL [Concomitant]
  7. KARDEGIC [Concomitant]

REACTIONS (3)
  - Fall [Recovered/Resolved]
  - Bradycardia [Recovered/Resolved]
  - Disorientation [Unknown]
